FAERS Safety Report 9372060 (Version 1)
Quarter: 2013Q2

REPORT INFORMATION
  Report Type: Report from Study
  Country: US (occurrence: US)
  Receive Date: 20130627
  Receipt Date: 20130627
  Transmission Date: 20140414
  Serious: Yes (Other)
  Sender: FDA-Public Use
  Company Number: US-MYLANLABS-2012S1013946

PATIENT
  Age: 52 Year
  Sex: Female

DRUGS (10)
  1. CLOZAPINE TABLETS [Suspect]
     Indication: SCHIZOAFFECTIVE DISORDER
     Route: 048
     Dates: end: 20120705
  2. CLOZAPINE TABLETS [Suspect]
     Indication: SCHIZOAFFECTIVE DISORDER
     Route: 048
     Dates: start: 20120710, end: 20120713
  3. CHEMOTHERAPEUTICS [Suspect]
     Indication: NEOPLASM MALIGNANT
  4. SYNTHROID [Concomitant]
  5. PRILOSEC [Concomitant]
  6. LORTAB [Concomitant]
     Dosage: 5MG/500MG
  7. COMPAZINE [Concomitant]
  8. NORVASC [Concomitant]
  9. ZYRTEC [Concomitant]
  10. VITAMIN [Concomitant]

REACTIONS (2)
  - Granulocytopenia [Not Recovered/Not Resolved]
  - Leukopenia [Not Recovered/Not Resolved]
